FAERS Safety Report 7415935-5 (Version None)
Quarter: 2011Q2

REPORT INFORMATION
  Report Type: 
  Country: None (occurrence: None)
  Receive Date: 20110414
  Receipt Date: 20110330
  Transmission Date: 20111010
  Serious: Yes (Hospitalization)
  Sender: FDA-Public Use
  Company Number: PHHY2011ES27108

PATIENT
  Age: 76 Year
  Sex: Female

DRUGS (6)
  1. AMLODIPINE [Concomitant]
     Dosage: UNK
     Route: 048
     Dates: start: 20090510
  2. OMEPRAZOLE [Concomitant]
     Route: 048
  3. VANDRAL [Suspect]
     Indication: ANTIDEPRESSANT THERAPY
     Dosage: 75 MG, PER DAY
     Dates: start: 20090510
  4. ESIDRIX [Suspect]
     Dosage: 20 MG, PER DAY
     Dates: start: 20090722, end: 20110214
  5. OXCARBAZEPINE [Suspect]
     Indication: EPILEPSY
     Dosage: 600 MG, PER DAY
     Route: 048
     Dates: start: 20091201, end: 20110214
  6. LOSARTAN [Concomitant]

REACTIONS (3)
  - DYSPNOEA [None]
  - HYPONATRAEMIA [None]
  - OEDEMA [None]
